FAERS Safety Report 9556894 (Version 4)
Quarter: 2015Q3

REPORT INFORMATION
  Report Type: Report from Study
  Country: US (occurrence: US)
  Receive Date: 20130724
  Receipt Date: 20150709
  Transmission Date: 20151125
  Serious: Yes (Other)
  Sender: FDA-Public Use
  Company Number: PHEH2013US008017

PATIENT
  Age: 56 Year
  Sex: Male
  Weight: 82.54 kg

DRUGS (5)
  1. GILENYA [Suspect]
     Active Substance: FINGOLIMOD HYDROCHLORIDE
     Dosage: 0.5 MG, QD
     Route: 048
     Dates: start: 20130401
  2. GILENYA [Suspect]
     Active Substance: FINGOLIMOD HYDROCHLORIDE
     Indication: RELAPSING-REMITTING MULTIPLE SCLEROSIS
     Dosage: 0.5 MG, QD
     Route: 048
     Dates: start: 20130320
  3. GILENYA [Suspect]
     Active Substance: FINGOLIMOD HYDROCHLORIDE
     Dosage: 0.5 MG, QD
     Route: 048
     Dates: start: 20130403
  4. GILENYA [Suspect]
     Active Substance: FINGOLIMOD HYDROCHLORIDE
     Dosage: 0.5 MG, QD
     Route: 048
     Dates: start: 20141111
  5. GILENYA [Suspect]
     Active Substance: FINGOLIMOD HYDROCHLORIDE
     Dosage: 0.5 MG, QD
     Route: 048
     Dates: end: 201406

REACTIONS (17)
  - Vein disorder [Unknown]
  - Balance disorder [Unknown]
  - Cervical spinal stenosis [Unknown]
  - Weight decreased [Unknown]
  - Diplopia [Unknown]
  - Neck pain [Not Recovered/Not Resolved]
  - Dizziness [Unknown]
  - Gait disturbance [Recovering/Resolving]
  - Asthenia [Unknown]
  - Hypoaesthesia [Unknown]
  - Cognitive disorder [Unknown]
  - Muscular weakness [Not Recovered/Not Resolved]
  - Electrocardiogram abnormal [Unknown]
  - Limb discomfort [Unknown]
  - Pain in extremity [Not Recovered/Not Resolved]
  - Nerve compression [Unknown]
  - Dehydration [Unknown]

NARRATIVE: CASE EVENT DATE: 20130320
